FAERS Safety Report 15075716 (Version 2)
Quarter: 2018Q4

REPORT INFORMATION
  Report Type: Spontaneous
  Country: US (occurrence: US)
  Receive Date: 20180627
  Receipt Date: 20181114
  Transmission Date: 20190204
  Serious: Yes (Other)
  Sender: FDA-Public Use
  Company Number: US-SA-2018SA166438

PATIENT
  Age: 71 Year
  Sex: Female

DRUGS (18)
  1. ASPIRIN [ACETYLSALICYLIC ACID] [Concomitant]
     Active Substance: ASPIRIN
  2. ATORVASTATIN [Concomitant]
     Active Substance: ATORVASTATIN
  3. TRAZODONE [Concomitant]
     Active Substance: TRAZODONE HYDROCHLORIDE
  4. BUPROPION. [Concomitant]
     Active Substance: BUPROPION
  5. VITAMIN D [Concomitant]
     Active Substance: CHOLECALCIFEROL
  6. AUBAGIO [Suspect]
     Active Substance: TERIFLUNOMIDE
     Dosage: 7 MG, QD
     Route: 048
     Dates: start: 20180505
  7. RANITIDINE. [Concomitant]
     Active Substance: RANITIDINE
  8. SULFAMETHOXAZOLE [Concomitant]
     Active Substance: SULFAMETHOXAZOLE
  9. TRAMADOL. [Concomitant]
     Active Substance: TRAMADOL
  10. BACLOFEN. [Concomitant]
     Active Substance: BACLOFEN
  11. TEMAZEPAM. [Concomitant]
     Active Substance: TEMAZEPAM
  12. VITAMIN B12 [Concomitant]
     Active Substance: CYANOCOBALAMIN
  13. ONDANSETRON [Concomitant]
     Active Substance: ONDANSETRON
  14. GABAPENTIN. [Concomitant]
     Active Substance: GABAPENTIN
  15. IBUPROFEN. [Concomitant]
     Active Substance: IBUPROFEN
  16. ERGOCALCIFEROL. [Concomitant]
     Active Substance: ERGOCALCIFEROL
  17. GLATIRAMER [Concomitant]
     Active Substance: GLATIRAMER
  18. PROMETHAZINE [Concomitant]
     Active Substance: PROMETHAZINE\PROMETHAZINE HYDROCHLORIDE

REACTIONS (2)
  - Hospitalisation [Unknown]
  - Urinary tract infection [Unknown]

NARRATIVE: CASE EVENT DATE: 20180531
